FAERS Safety Report 9350626 (Version 2)
Quarter: 2013Q2

REPORT INFORMATION
  Report Type: Spontaneous
  Country: CO (occurrence: CO)
  Receive Date: 20130617
  Receipt Date: 20130620
  Transmission Date: 20140414
  Serious: Yes (Other)
  Sender: FDA-Public Use
  Company Number: CO-JNJFOC-20130605257

PATIENT
  Age: 12 Year
  Sex: Male

DRUGS (1)
  1. TOPAMAC [Suspect]
     Indication: EPILEPSY
     Route: 048

REACTIONS (2)
  - Abnormal behaviour [Unknown]
  - Aggression [Unknown]
